FAERS Safety Report 17190988 (Version 2)
Quarter: 2020Q1

REPORT INFORMATION
  Report Type: Spontaneous
  Country: ES (occurrence: ES)
  Receive Date: 20191223
  Receipt Date: 20200102
  Transmission Date: 20200409
  Serious: Yes (Death, Hospitalization)
  Sender: FDA-Public Use
  Company Number: ES-CELGENEUS-ESP-20191208120

PATIENT
  Age: 58 Year
  Sex: Female
  Weight: 47 kg

DRUGS (20)
  1. MEDI4736 (DURVALUMAB) [Concomitant]
     Active Substance: DURVALUMAB
     Indication: PANCREATIC CARCINOMA METASTATIC
     Route: 042
     Dates: start: 20190723, end: 20190723
  2. OLECLUMAB. [Concomitant]
     Active Substance: OLECLUMAB
     Indication: PANCREATIC CARCINOMA METASTATIC
     Route: 042
     Dates: start: 20190723, end: 20190723
  3. PARACETAMOL [Concomitant]
     Active Substance: ACETAMINOPHEN
     Indication: ANALGESIC THERAPY
     Dosage: 3 GRAM
     Route: 048
  4. ABRAXANE [Suspect]
     Active Substance: PACLITAXEL
     Route: 042
     Dates: start: 20190903, end: 20190903
  5. KREON [Concomitant]
     Active Substance: PANCRELIPASE
     Indication: PANCREATIC FAILURE
     Route: 048
  6. SEVREDOL [Concomitant]
     Active Substance: MORPHINE
     Route: 048
  7. ABRAXANE [Suspect]
     Active Substance: PACLITAXEL
     Route: 042
     Dates: start: 20190910, end: 20190910
  8. MEDI4736 (DURVALUMAB) [Concomitant]
     Active Substance: DURVALUMAB
     Route: 042
     Dates: start: 20190827, end: 20190827
  9. OLECLUMAB. [Concomitant]
     Active Substance: OLECLUMAB
     Route: 042
     Dates: start: 20190910, end: 20190910
  10. GEMCITABINE. [Concomitant]
     Active Substance: GEMCITABINE
     Route: 042
     Dates: start: 20190730, end: 20190730
  11. GEMCITABINE. [Concomitant]
     Active Substance: GEMCITABINE
     Route: 042
     Dates: start: 20190827, end: 20190827
  12. OMEPRAZOLE. [Concomitant]
     Active Substance: OMEPRAZOLE
     Indication: PROPHYLAXIS AGAINST GASTROINTESTINAL ULCER
     Dosage: 20 MILLIGRAM
     Route: 048
  13. IBUPROFEN. [Concomitant]
     Active Substance: IBUPROFEN
     Indication: PAIN PROPHYLAXIS
     Route: 048
  14. ABRAXANE [Suspect]
     Active Substance: PACLITAXEL
     Route: 042
     Dates: start: 20190827, end: 20190827
  15. ABRAXANE [Suspect]
     Active Substance: PACLITAXEL
     Indication: PANCREATIC CARCINOMA METASTATIC
     Route: 042
     Dates: start: 20190723, end: 20190723
  16. OLECLUMAB. [Concomitant]
     Active Substance: OLECLUMAB
     Route: 042
     Dates: start: 20190827, end: 20190827
  17. GEMCITABINE. [Concomitant]
     Active Substance: GEMCITABINE
     Indication: PANCREATIC CARCINOMA METASTATIC
     Route: 042
     Dates: start: 20190723, end: 20190723
  18. ABRAXANE [Suspect]
     Active Substance: PACLITAXEL
     Route: 042
     Dates: start: 20190730, end: 20190730
  19. PARACETAMOL [Concomitant]
     Active Substance: ACETAMINOPHEN
     Dosage: 3 GRAM
     Route: 048
     Dates: start: 20190902
  20. SEVREDOL [Concomitant]
     Active Substance: MORPHINE
     Indication: ABDOMINAL PAIN
     Route: 048
     Dates: start: 20190902

REACTIONS (1)
  - Cerebral ischaemia [Fatal]

NARRATIVE: CASE EVENT DATE: 20191022
